FAERS Safety Report 5282184-9 (Version None)
Quarter: 2007Q1

REPORT INFORMATION
  Report Type: 
  Country: None (occurrence: None)
  Receive Date: 20070330
  Receipt Date: 20070320
  Transmission Date: 20070707
  Serious: Yes (Death)
  Sender: FDA-Public Use
  Company Number: FR-PFIZER INC-2007013182

PATIENT
  Sex: Male
  Weight: 97 kg

DRUGS (2)
  1. CADUET [Suspect]
     Indication: HYPERTENSION
     Route: 048
     Dates: start: 20070130, end: 20070211
  2. AMLOR [Concomitant]
     Indication: ESSENTIAL HYPERTENSION
     Dates: start: 19930101, end: 20070129

REACTIONS (1)
  - DEATH [None]
